FAERS Safety Report 15698316 (Version 1)
Quarter: 2018Q4

REPORT INFORMATION
  Report Type: Spontaneous
  Country: US (occurrence: US)
  Receive Date: 20181207
  Receipt Date: 20181207
  Transmission Date: 20190205
  Serious: No
  Sender: FDA-Public Use
  Company Number: US-PFIZER INC-2018498390

PATIENT
  Age: 45 Year
  Sex: Female

DRUGS (4)
  1. LYRICA [Suspect]
     Active Substance: PREGABALIN
     Indication: MYALGIA
     Dosage: 150 MG, 2X/DAY (1 CAPSULE BY MOUTH 2 TIMES PER DAY)
     Route: 048
  2. CELEBREX [Suspect]
     Active Substance: CELECOXIB
     Indication: MYALGIA
     Dosage: 200 MG, AS NEEDED, (1 CAPSULE BY MOUTH 2 TIMES PER DAY WITH FOOD AS NEEDED)
     Route: 048
  3. CELEBREX [Suspect]
     Active Substance: CELECOXIB
     Indication: MYOSITIS
  4. LYRICA [Suspect]
     Active Substance: PREGABALIN
     Indication: MYOSITIS

REACTIONS (2)
  - Pain [Unknown]
  - Product use in unapproved indication [Unknown]
